FAERS Safety Report 7604791-8 (Version None)
Quarter: 2011Q3

REPORT INFORMATION
  Report Type: 
  Country: None (occurrence: None)
  Receive Date: 20110712
  Receipt Date: 20110705
  Transmission Date: 20111222
  Serious: Yes (Death, Life-Threatening, Other)
  Sender: FDA-Public Use
  Company Number: JP-CELGENEUS-087-50794-11060754

PATIENT
  Sex: Male

DRUGS (51)
  1. KYTRIL [Concomitant]
     Dosage: 1 MILLIGRAM
     Route: 048
     Dates: start: 20110317, end: 20110323
  2. LANSOPRAZOLE [Concomitant]
     Dosage: 30 MILLIGRAM
     Route: 048
     Dates: start: 20110317, end: 20110530
  3. ITRACONAZOLE [Concomitant]
     Dosage: 20 MILLILITER
     Route: 048
     Dates: start: 20110428, end: 20110516
  4. VIDAZA [Suspect]
     Indication: MYELODYSPLASTIC SYNDROME
     Dosage: 75 MILLIGRAM/SQ. METER
     Route: 058
     Dates: start: 20110317, end: 20110322
  5. LEVOFLOXACIN [Concomitant]
     Dosage: 500 MILLIGRAM
     Route: 048
     Dates: start: 20110428, end: 20110513
  6. PURSENNID [Concomitant]
     Dosage: 24 MILLIGRAM
     Route: 048
     Dates: start: 20110321, end: 20110530
  7. LOXONIN [Concomitant]
     Route: 061
  8. CHLOR-TRIMETON [Concomitant]
     Dosage: 10 MILLIGRAM
     Route: 051
     Dates: end: 20110530
  9. DORIPENEM MONOHYDRATE [Concomitant]
     Dosage: 3 GRAM
     Route: 051
     Dates: start: 20110517, end: 20110530
  10. MYOCOR [Concomitant]
     Dosage: PROPER DOSE
     Route: 060
     Dates: start: 20110527, end: 20110527
  11. MORPHINE HCL ELIXIR [Concomitant]
     Dosage: 10 MILLIGRAM
     Route: 051
     Dates: start: 20110529, end: 20110530
  12. ELEMENMIC [Concomitant]
     Dosage: 2 MILLILITER
     Route: 051
     Dates: start: 20110525, end: 20110530
  13. MAXIPIME [Concomitant]
     Dosage: 2 GRAM
     Route: 051
     Dates: start: 20110419, end: 20110424
  14. NEUTROGIN [Concomitant]
     Dosage: 250 MICROGRAM
     Route: 051
     Dates: start: 20110518, end: 20110530
  15. PRIMPERAN TAB [Concomitant]
     Dosage: 5 MILLIGRAM
     Route: 048
     Dates: start: 20110326, end: 20110530
  16. PRIMPERAN TAB [Concomitant]
     Dosage: 10 MILLIGRAM
     Route: 051
     Dates: start: 20110510, end: 20110510
  17. LOXONIN [Concomitant]
     Dosage: 60 MILLIGRAM
     Route: 048
     Dates: start: 20110320, end: 20110530
  18. HYDROCORTONE [Concomitant]
     Dosage: 100 MILLIGRAM
     Route: 051
     Dates: start: 20110510, end: 20110510
  19. FUNGUARD [Concomitant]
     Dosage: 150 MILLIGRAM
     Route: 051
     Dates: start: 20110516, end: 20110530
  20. HUMULIN R [Concomitant]
     Dosage: 18 IU (INTERNATIONAL UNIT)
     Route: 058
     Dates: start: 20110525, end: 20110530
  21. MAXIPIME [Concomitant]
     Dosage: 2 GRAM
     Route: 051
     Dates: start: 20110323, end: 20110325
  22. VFEND [Concomitant]
     Dosage: 300 MILLIGRAM
     Route: 048
     Dates: start: 20110512, end: 20110518
  23. ACUATIM [Concomitant]
     Dosage: PROPER DOSE
     Route: 061
     Dates: start: 20110527, end: 20110527
  24. VANCOMYCIN [Concomitant]
     Dosage: 1 GRAM
     Route: 041
     Dates: start: 20110529, end: 20110530
  25. VIDAZA [Suspect]
     Dosage: 25 MILLIGRAM/SQ. METER
     Route: 058
     Dates: start: 20110509, end: 20110515
  26. KYTRIL [Concomitant]
     Dosage: 1 MILLIGRAM
     Route: 048
     Dates: start: 20110509, end: 20110515
  27. MAGNESIUM OXIDE [Concomitant]
     Dosage: 1.5 GRAM
     Route: 048
     Dates: end: 20110511
  28. JU-KAMA [Concomitant]
     Dosage: 3 DOSAGE FORMS
     Route: 048
     Dates: end: 20110530
  29. LORAZEPAM [Concomitant]
     Dosage: .5 MILLIGRAM
     Route: 048
     Dates: start: 20110528, end: 20110528
  30. LENDORMIN [Concomitant]
     Dosage: .25 MILLIGRAM
     Route: 048
     Dates: start: 20110528, end: 20110528
  31. WHITE PETROLATUM [Concomitant]
     Route: 061
  32. VITAMEDIN [Concomitant]
     Dosage: 1 DOSAGE FORMS
     Route: 051
     Dates: start: 20110512, end: 20110530
  33. SULFAMETHOXAZOLE [Concomitant]
     Dosage: 1 DOSAGE FORMS
     Route: 048
     Dates: end: 20110530
  34. ACETAMINOPHEN [Concomitant]
     Dosage: 400 MILLIGRAM
     Route: 048
     Dates: start: 20110322, end: 20110530
  35. HIRUDOID [Concomitant]
     Dosage: PORPER DOSE
     Route: 061
     Dates: end: 20110530
  36. AZUNOL [Concomitant]
     Dosage: PROPER DOSE
     Route: 048
     Dates: start: 20110322, end: 20110530
  37. FK [Concomitant]
     Dosage: 3.9 GRAM
     Route: 048
     Dates: end: 20110530
  38. CLINDAMYCIN [Concomitant]
     Dosage: 300 MILLIGRAM
     Route: 051
     Dates: start: 20110425, end: 20110428
  39. CIPROFLOXACIN HCL [Concomitant]
     Dosage: 300 MILLIGRAM
     Route: 051
     Dates: start: 20110425, end: 20110427
  40. AMOXICILLIN [Concomitant]
     Dosage: 750 MILLIGRAM
     Route: 048
     Dates: start: 20110516, end: 20110518
  41. VFEND [Concomitant]
     Dosage: 600 MILLIGRAM
     Route: 048
     Dates: start: 20110511, end: 20110511
  42. AMBISOME [Concomitant]
     Dosage: 125-175MG
     Route: 051
     Dates: start: 20110510, end: 20110511
  43. LASIX [Concomitant]
     Dosage: 20 MILLIGRAM
     Route: 051
     Dates: start: 20110524, end: 20110530
  44. DROPERIDOL [Concomitant]
     Dosage: 2.5 MILLIGRAM
     Route: 051
  45. VALTREX [Concomitant]
     Dosage: 500 MILLIGRAM
     Route: 048
     Dates: end: 20110530
  46. RINDERON-V [Concomitant]
     Dosage: PROPER DOSE
     Route: 061
     Dates: end: 20110530
  47. HEPAFLUSH [Concomitant]
     Dosage: 10 MILLIGRAM
     Route: 051
  48. ANHIBA [Concomitant]
     Dosage: 400 MILLIGRAM
     Route: 054
     Dates: start: 20110509, end: 20110530
  49. DOMININ [Concomitant]
     Dosage: 300 MILLIGRAM
     Route: 051
     Dates: start: 20110521, end: 20110530
  50. FULCALIQ [Concomitant]
     Dosage: 1003 MILLILITER
     Route: 051
  51. MAXIPIME [Concomitant]
     Dosage: 2 GRAM
     Route: 051
     Dates: start: 20110507, end: 20110509

REACTIONS (9)
  - LEUKOPENIA [None]
  - ANAEMIA [None]
  - NEUTROPENIA [None]
  - RENAL IMPAIRMENT [None]
  - THROMBOCYTOPENIA [None]
  - PYREXIA [None]
  - CELLULITIS [None]
  - NAUSEA [None]
  - PNEUMONIA [None]
